FAERS Safety Report 8213290-4 (Version None)
Quarter: 2012Q1

REPORT INFORMATION
  Report Type: 
  Country: None (occurrence: None)
  Receive Date: 20120315
  Receipt Date: 20120309
  Transmission Date: 20120608
  Serious: Yes (Other)
  Sender: FDA-Public Use
  Company Number: BR-PFIZER INC-2011289231

PATIENT
  Age: 52 Year
  Sex: Female
  Weight: 80 kg

DRUGS (5)
  1. LYRICA [Suspect]
     Indication: FIBROMYALGIA
  2. LYRICA [Suspect]
     Indication: RHEUMATOID ARTHRITIS
  3. LYRICA [Suspect]
     Indication: NEURALGIA
     Dosage: 75 MG (ONE CAPSULE), 1X/DAY
     Route: 048
     Dates: start: 20111101
  4. METICORTEN [Concomitant]
     Indication: RHEUMATOID ARTHRITIS
     Dosage: 5 MG, ALTERNATE DAY
     Dates: start: 20010101
  5. METHOTREXATE [Concomitant]
     Indication: RHEUMATOID ARTHRITIS
     Dosage: 7.5 MG, THREE TABLETS OF 2.5MG, WEEKLY
     Dates: start: 20010101

REACTIONS (8)
  - FORMICATION [None]
  - BLOOD PRESSURE INCREASED [None]
  - REFLEXES ABNORMAL [None]
  - MEMORY IMPAIRMENT [None]
  - VISION BLURRED [None]
  - IMPAIRED DRIVING ABILITY [None]
  - DIZZINESS [None]
  - LIVER DISORDER [None]
